FAERS Safety Report 9333846 (Version 1)
Quarter: 2013Q2

REPORT INFORMATION
  Report Type: Spontaneous
  Country: CO (occurrence: CO)
  Receive Date: 20130606
  Receipt Date: 20130606
  Transmission Date: 20140414
  Serious: Yes (Hospitalization)
  Sender: FDA-Public Use
  Company Number: CO-ASTRAZENECA-2013SE40140

PATIENT
  Age: 4 Month
  Sex: Female
  Weight: 2.6 kg

DRUGS (1)
  1. SYNAGIS [Suspect]
     Indication: BRONCHOPULMONARY DYSPLASIA
     Route: 030
     Dates: start: 20130213, end: 20130314

REACTIONS (1)
  - Bronchiolitis [Unknown]
